FAERS Safety Report 23233023 (Version 2)
Quarter: 2023Q4

REPORT INFORMATION
  Report Type: Spontaneous
  Country: MX (occurrence: MX)
  Receive Date: 20231128
  Receipt Date: 20231201
  Transmission Date: 20240110
  Serious: Yes (Other)
  Sender: FDA-Public Use
  Company Number: MX-AstraZeneca-2023A257533

PATIENT

DRUGS (3)
  1. GOSERELIN [Suspect]
     Active Substance: GOSERELIN
     Indication: Prostate cancer
     Dosage: 3.6 MILLIGRAM, MONTHLY
     Route: 030
     Dates: start: 20231028
  2. GOSERELIN [Suspect]
     Active Substance: GOSERELIN
     Dosage: 3.6 MILLIGRAM
     Route: 058
     Dates: start: 2023
  3. ZOLADEX [Suspect]
     Active Substance: GOSERELIN ACETATE
     Indication: Prostate cancer
     Dosage: UNK
     Route: 065

REACTIONS (10)
  - Malignant neoplasm progression [Recovering/Resolving]
  - Bladder pain [Not Recovered/Not Resolved]
  - Gastrointestinal pain [Not Recovered/Not Resolved]
  - Body temperature increased [Unknown]
  - Hot flush [Recovered/Resolved]
  - Fatigue [Recovering/Resolving]
  - Pain [Recovering/Resolving]
  - Anxiety [Not Recovered/Not Resolved]
  - Incorrect route of product administration [Unknown]
  - Therapeutic response unexpected [Unknown]

NARRATIVE: CASE EVENT DATE: 20230901
